FAERS Safety Report 8773888 (Version 1)
Quarter: 2012Q4

REPORT INFORMATION
  Report Type: 
  Country: GB (occurrence: GB)
  Receive Date: 20120907
  Receipt Date: 20120907
  Transmission Date: 20130627
  Serious: Yes (Other)
  Sender: FDA-Public Use
  Company Number: GB-UCBSA-064915

PATIENT
  Age: 31 Year
  Sex: Female

DRUGS (5)
  1. CIMZIA [Suspect]
     Indication: RHEUMATOID ARTHRITIS
     Route: 058
     Dates: start: 20120809, end: 20120821
  2. PREDNISOLONE [Concomitant]
  3. LEFLUNOMIDE [Concomitant]
  4. PLAQUENIL [Concomitant]
  5. SULPHASALAZINE [Concomitant]

REACTIONS (7)
  - Hypersensitivity [Recovering/Resolving]
  - Injection site rash [Recovering/Resolving]
  - Injection site erythema [Recovered/Resolved]
  - Skin irritation [Recovering/Resolving]
  - Pain of skin [Recovering/Resolving]
  - Abdominal pain [Recovering/Resolving]
  - Urinary tract infection [Unknown]
